FAERS Safety Report 12437813 (Version 1)
Quarter: 2016Q2

REPORT INFORMATION
  Report Type: Spontaneous
  Country: US (occurrence: US)
  Receive Date: 20160606
  Receipt Date: 20160606
  Transmission Date: 20160815
  Serious: Yes (Other)
  Sender: FDA-Public Use
  Company Number: US-TEVA-664166USA

PATIENT
  Sex: Female

DRUGS (6)
  1. JINTELI [Concomitant]
     Active Substance: ETHINYL ESTRADIOL\NORETHINDRONE ACETATE
  2. BIOTIN [Concomitant]
     Active Substance: BIOTIN
  3. VITAMIN B12 [Concomitant]
     Active Substance: CYANOCOBALAMIN
  4. MULTIVITAMINS [Concomitant]
     Active Substance: VITAMINS
  5. PROBIOTICA [Concomitant]
     Active Substance: PROBIOTICS NOS
  6. COPAXONE [Suspect]
     Active Substance: GLATIRAMER ACETATE
     Indication: MULTIPLE SCLEROSIS
     Route: 058
     Dates: start: 20141217

REACTIONS (1)
  - Multiple sclerosis relapse [Unknown]

NARRATIVE: CASE EVENT DATE: 2016
